FAERS Safety Report 10647803 (Version 1)
Quarter: 2014Q4

REPORT INFORMATION
  Report Type: Report from Study
  Country: CA (occurrence: CA)
  Receive Date: 20141212
  Receipt Date: 20141212
  Transmission Date: 20150529
  Serious: Yes (Hospitalization, Other)
  Sender: FDA-Public Use
  Company Number: CA-AMGEN-CANSL2014095526

PATIENT
  Age: 66 Year
  Sex: Female

DRUGS (4)
  1. NEUPOGEN [Suspect]
     Active Substance: FILGRASTIM
     Indication: METASTASES TO LYMPH NODES
  2. NEUPOGEN [Suspect]
     Active Substance: FILGRASTIM
     Indication: METASTASES TO BONE
  3. NEUPOGEN [Suspect]
     Active Substance: FILGRASTIM
     Indication: LUNG NEOPLASM MALIGNANT
     Dosage: 1.6ML/480MCG, ONCE DAILY
     Route: 065
     Dates: start: 20141117
  4. ALEVE [Concomitant]
     Active Substance: NAPROXEN SODIUM
     Dosage: UNK

REACTIONS (12)
  - Fall [Unknown]
  - Dehydration [Recovered/Resolved]
  - Haematemesis [Recovered/Resolved]
  - White blood cell disorder [Unknown]
  - Pneumonia [Recovered/Resolved]
  - Gastric ulcer [Unknown]
  - Back injury [Unknown]
  - Syncope [Unknown]
  - Facial bones fracture [Unknown]
  - Bone pain [Recovered/Resolved]
  - Pyrexia [Recovered/Resolved]
  - Chills [Recovered/Resolved]

NARRATIVE: CASE EVENT DATE: 201411
